FAERS Safety Report 4546665-5 (Version None)
Quarter: 2005Q1

REPORT INFORMATION
  Report Type: 
  Country: None (occurrence: None)
  Receive Date: 20050105
  Receipt Date: 20041221
  Transmission Date: 20050727
  Serious: Yes (Death, Hospitalization)
  Sender: FDA-Public Use
  Company Number: 2004AL000895

PATIENT
  Age: 35 Year
  Sex: Female

DRUGS (7)
  1. CHILDREN'S APAP ELIXIR (ACETAMINOPHEN) (ALPHARMA) [Suspect]
     Dosage: PO
     Route: 048
  2. INFANTS' APAP DROPS (ACETAMINOPHEN) (ALPHARMA) [Suspect]
     Dosage: PO
     Route: 048
  3. OXCARBAZEPINE [Suspect]
     Dosage: PO
     Route: 048
  4. AMPHETAMINE/DEXTROAMPHETAMINE [Suspect]
     Dosage: PO
     Route: 048
  5. TRAZADONE HYDROCHLORIDE TABLETS, 100MG/5ML (PUREPAC) [Suspect]
     Dosage: PO
     Route: 048
  6. PAROXETINE [Suspect]
     Dosage: PO
     Route: 048
  7. IBUPROFEN [Suspect]
     Dosage: PO
     Route: 048

REACTIONS (19)
  - ALANINE AMINOTRANSFERASE INCREASED [None]
  - ASPARTATE AMINOTRANSFERASE INCREASED [None]
  - BLOOD BILIRUBIN INCREASED [None]
  - BLOOD LACTATE DEHYDROGENASE DECREASED [None]
  - CHROMATURIA [None]
  - COMA [None]
  - COMPLETED SUICIDE [None]
  - DEHYDRATION [None]
  - DIALYSIS [None]
  - HAEMODIALYSIS [None]
  - HYPOTENSION [None]
  - HYPOXIA [None]
  - INTERNATIONAL NORMALISED RATIO INCREASED [None]
  - LIVER TRANSPLANT [None]
  - MULTIPLE DRUG OVERDOSE [None]
  - RENAL FAILURE [None]
  - SOMNOLENCE [None]
  - TACHYCARDIA [None]
  - URINE OUTPUT DECREASED [None]
